FAERS Safety Report 7888068-1 (Version None)
Quarter: 2011Q4

REPORT INFORMATION
  Report Type: 
  Country: None (occurrence: None)
  Receive Date: 20111103
  Receipt Date: 20111026
  Transmission Date: 20120403
  Serious: Yes (Hospitalization)
  Sender: FDA-Public Use
  Company Number: US-B.I. PHARMACEUTICALS,INC./RIDGEFIELD-2011-BP-22079BP

PATIENT
  Sex: Female

DRUGS (17)
  1. DIGOXIN [Concomitant]
     Indication: CARDIAC FAILURE CONGESTIVE
     Route: 048
  2. COUMADIN [Concomitant]
     Indication: CARDIAC FAILURE CONGESTIVE
     Dosage: 1 MG
     Route: 048
  3. SPIRIVA [Suspect]
     Indication: DYSPNOEA
  4. LISINOPRIL [Concomitant]
     Indication: HYPERTENSION
     Route: 048
  5. LASIX [Concomitant]
     Indication: CARDIAC FAILURE CONGESTIVE
     Route: 048
  6. FLOMAX [Concomitant]
     Indication: URINE ABNORMALITY
     Route: 048
  7. ALBUTEROL [Concomitant]
     Route: 055
  8. TOLNAFTATE [Concomitant]
     Indication: ONYCHOMYCOSIS
     Route: 061
  9. SPIRIVA [Suspect]
     Indication: CHRONIC OBSTRUCTIVE PULMONARY DISEASE
  10. CYMBALTA [Concomitant]
     Indication: DEPRESSION
     Route: 048
  11. SPIRIVA [Suspect]
     Indication: WHEEZING
     Dosage: 18 MCG
     Route: 055
     Dates: start: 20110728, end: 20110914
  12. RITALIN [Concomitant]
     Indication: CEREBROVASCULAR ACCIDENT
     Route: 048
  13. TOPROL-XL [Concomitant]
     Indication: HYPERTENSION
     Route: 048
  14. LIPITOR [Concomitant]
     Indication: BLOOD CHOLESTEROL INCREASED
     Route: 048
  15. NORVASC [Concomitant]
     Indication: HYPERTENSION
     Route: 048
  16. POTASSIUM [Concomitant]
     Indication: ELECTROLYTE SUBSTITUTION THERAPY
     Route: 048
  17. SYMBICORT [Concomitant]

REACTIONS (4)
  - URINARY RETENTION [None]
  - URINARY INCONTINENCE [None]
  - DYSURIA [None]
  - CYSTITIS [None]
